FAERS Safety Report 5533995-3 (Version None)
Quarter: 2007Q4

REPORT INFORMATION
  Report Type: 
  Country: None (occurrence: None)
  Receive Date: 20071130
  Receipt Date: 20071114
  Transmission Date: 20080405
  Serious: Yes (Hospitalization, Other)
  Sender: FDA-Public Use
  Company Number: 020976

PATIENT
  Age: 41 Year
  Sex: Male

DRUGS (4)
  1. OXYCODONE + ACETAMINOPHEN (OXYCODONE, ACETAMINOPHEN) TABLET, 5/325MG [Suspect]
     Indication: PAIN
     Dosage: 1 TO 2 TABS EVERY 4 TO 6 HOURSM ORAL
     Route: 048
  2. HYDROMORPHONE HCL [Concomitant]
  3. NALOXONE [Concomitant]
  4. COLCHICUM JTL LIQ [Concomitant]

REACTIONS (18)
  - BRADYCARDIA [None]
  - CATHETER RELATED COMPLICATION [None]
  - DEPRESSED LEVEL OF CONSCIOUSNESS [None]
  - HYPERHIDROSIS [None]
  - HYPOTENSION [None]
  - LETHARGY [None]
  - MIOSIS [None]
  - NO THERAPEUTIC RESPONSE [None]
  - OSTEOMYELITIS [None]
  - PUPILLARY REFLEX IMPAIRED [None]
  - PYREXIA [None]
  - RESPIRATORY DEPRESSION [None]
  - SINUS ARREST [None]
  - SKIN DISCOLOURATION [None]
  - SLEEP APNOEA SYNDROME [None]
  - SOMNOLENCE [None]
  - STUPOR [None]
  - UNRESPONSIVE TO STIMULI [None]
